FAERS Safety Report 7279810-1 (Version None)
Quarter: 2011Q1

REPORT INFORMATION
  Report Type: 
  Country: None (occurrence: None)
  Receive Date: 20110208
  Receipt Date: 20110131
  Transmission Date: 20110831
  Serious: Yes (Other)
  Sender: FDA-Public Use
  Company Number: AU-AMGEN-AUSSP2011006766

PATIENT
  Sex: Female

DRUGS (8)
  1. METHOTREXATE [Concomitant]
     Dosage: 10 MG, WEEKLY
  2. ENBREL [Suspect]
     Indication: PSORIATIC ARTHROPATHY
     Dosage: 50 MG, UNK
     Route: 058
  3. LEFLUNOMIDE [Concomitant]
     Dosage: 10 MG, 1X/DAY
  4. FEXOFENADINE HCL [Concomitant]
     Dosage: UNK
  5. FOLIC ACID [Concomitant]
     Dosage: 1 MG, 1X/DAY
  6. FLUVAX                             /00027001/ [Concomitant]
     Dosage: UNK
  7. DIANE [Concomitant]
     Dosage: UNK
  8. VOLTAREN [Concomitant]
     Dosage: UNK

REACTIONS (3)
  - C-REACTIVE PROTEIN INCREASED [None]
  - LOWER RESPIRATORY TRACT INFECTION [None]
  - INJECTION SITE REACTION [None]
